FAERS Safety Report 5763591-4 (Version None)
Quarter: 2008Q2

REPORT INFORMATION
  Report Type: 
  Country: None (occurrence: None)
  Receive Date: 20080610
  Receipt Date: 20080530
  Transmission Date: 20081010
  Serious: Yes (Other)
  Sender: FDA-Public Use
  Company Number: PHEH2008US03508

PATIENT
  Sex: Female
  Weight: 73.923 kg

DRUGS (4)
  1. GLEEVEC [Suspect]
     Indication: DERMATOFIBROSARCOMA
     Dosage: 400 MG, BID
     Route: 048
     Dates: start: 20060701
  2. LIPITOR [Concomitant]
     Dosage: 10 MG, QD
     Dates: start: 20060701
  3. PAXIL [Concomitant]
     Dosage: 30 MG, QD
     Dates: start: 20060701
  4. ZYRTEC [Concomitant]
     Dosage: 10 MG, QD
     Dates: start: 20060701

REACTIONS (1)
  - BREAST CANCER STAGE III [None]
